APPROVED DRUG PRODUCT: DOXERCALCIFEROL
Active Ingredient: DOXERCALCIFEROL
Strength: 2.5MCG
Dosage Form/Route: CAPSULE;ORAL
Application: A091433 | Product #003
Applicant: HIKMA PHARMACEUTICALS USA INC
Approved: Jan 14, 2014 | RLD: No | RS: No | Type: DISCN